FAERS Safety Report 9688145 (Version 1)
Quarter: 2013Q4

REPORT INFORMATION
  Report Type: Report from Study
  Country: US (occurrence: US)
  Receive Date: 20131114
  Receipt Date: 20131114
  Transmission Date: 20140711
  Serious: Yes (Death)
  Sender: FDA-Public Use
  Company Number: US-ROXANE LABORATORIES, INC.-2013-BI-35754GD

PATIENT
  Sex: Female

DRUGS (5)
  1. DEXTROMETHORPHAN [Suspect]
  2. OXYCODONE [Suspect]
  3. DIPHENHYDRAMINE [Suspect]
  4. BROMPHENIRAMINE [Suspect]
  5. GUAIFENESIN [Suspect]

REACTIONS (1)
  - Death [Fatal]
